FAERS Safety Report 12242023 (Version 1)
Quarter: 2016Q2

REPORT INFORMATION
  Report Type: Spontaneous
  Country: FR (occurrence: FR)
  Receive Date: 20160406
  Receipt Date: 20160406
  Transmission Date: 20160815
  Serious: Yes (Hospitalization)
  Sender: FDA-Public Use
  Company Number: FR-SA-2016SA065534

PATIENT
  Age: 90 Year
  Sex: Male

DRUGS (10)
  1. GLICLAZIDE [Concomitant]
     Active Substance: GLICLAZIDE
  2. MELAXOSE [Concomitant]
     Active Substance: LACTULOSE\PARAFFIN
  3. KARDEGIC [Concomitant]
     Active Substance: ASPIRIN LYSINE
  4. OMIX LP [Concomitant]
     Active Substance: TAMSULOSIN HYDROCHLORIDE
  5. DUPHALAC [Concomitant]
     Active Substance: LACTULOSE
  6. PLAVIX [Suspect]
     Active Substance: CLOPIDOGREL BISULFATE
     Route: 048
     Dates: end: 20151209
  7. CARDENSIEL [Concomitant]
     Active Substance: BISOPROLOL FUMARATE
  8. TARDYFERON B(9) [Concomitant]
     Active Substance: FERROUS SULFATE\FOLIC ACID
  9. INEXIUM [Concomitant]
     Active Substance: ESOMEPRAZOLE
  10. LASILIX [Concomitant]
     Active Substance: FUROSEMIDE

REACTIONS (1)
  - Anaemia [Recovering/Resolving]

NARRATIVE: CASE EVENT DATE: 201512
